FAERS Safety Report 10016742 (Version 1)
Quarter: 2014Q1

REPORT INFORMATION
  Report Type: Spontaneous
  Country: BR (occurrence: BR)
  Receive Date: 20140318
  Receipt Date: 20140318
  Transmission Date: 20141002
  Serious: Yes (Hospitalization, Other)
  Sender: FDA-Public Use
  Company Number: PHHY2014BR031148

PATIENT
  Sex: Male
  Weight: 40 kg

DRUGS (3)
  1. TEGRETOL [Suspect]
     Indication: CONVULSION
     Dosage: 2 TABLET (400MG) DAILY
     Route: 048
  2. TEGRETOL [Suspect]
     Dosage: 2 TABLETS (400 MG) DAILY VIA TUBE
     Dates: start: 20140311
  3. GARDENAL//PHENOBARBITAL [Suspect]
     Indication: CONVULSION
     Dosage: 1 TABLET (100 MG), DAILY
     Route: 048

REACTIONS (9)
  - Cerebrovascular accident [Recovered/Resolved]
  - Paralysis [Unknown]
  - Hypokinesia [Not Recovered/Not Resolved]
  - Dysphagia [Not Recovered/Not Resolved]
  - Cough [Not Recovered/Not Resolved]
  - Convulsion [Recovering/Resolving]
  - Dyspnoea [Not Recovered/Not Resolved]
  - Hypotension [Recovering/Resolving]
  - Wrong technique in drug usage process [Unknown]
